FAERS Safety Report 10261877 (Version 2)
Quarter: 2014Q3

REPORT INFORMATION
  Report Type: Spontaneous
  Country: PT (occurrence: PT)
  Receive Date: 20140626
  Receipt Date: 20140711
  Transmission Date: 20150326
  Serious: Yes (Hospitalization)
  Sender: FDA-Public Use
  Company Number: PT-TEVA-490035ISR

PATIENT
  Age: 68 Year
  Sex: Female

DRUGS (21)
  1. PROPRANOLOL [Suspect]
     Active Substance: PROPRANOLOL\PROPRANOLOL HYDROCHLORIDE
  2. ETORICOXIB [Suspect]
     Active Substance: ETORICOXIB
  3. TRIHEXYPHENIDYL [Suspect]
     Active Substance: TRIHEXYPHENIDYL
  4. ALPRAZOLAM. [Suspect]
     Active Substance: ALPRAZOLAM
     Dosage: 1 MILLIGRAM DAILY;
  5. DEFLAZACORT [Suspect]
     Active Substance: DEFLAZACORT
  6. TRIMETAZIDINE [Suspect]
     Active Substance: TRIMETAZIDINE
  7. ACECLOFENAC [Suspect]
     Active Substance: ACECLOFENAC
  8. ALFUZOSIN [Suspect]
     Active Substance: ALFUZOSIN
     Dosage: 5 MILLIGRAM DAILY;
  9. CHLORDIAZEPOXIDE [Suspect]
     Active Substance: CHLORDIAZEPOXIDE
  10. PAROXETINE [Suspect]
     Active Substance: PAROXETINE\PAROXETINE HYDROCHLORIDE
     Dosage: 90 MILLIGRAM DAILY;
  11. SIMVASTATIN. [Suspect]
     Active Substance: SIMVASTATIN
     Dosage: 40 MILLIGRAM DAILY;
  12. OMEPRAZOLE. [Suspect]
     Active Substance: OMEPRAZOLE
     Dosage: 20 MILLIGRAM DAILY;
  13. GLUCOSAMINE [Suspect]
     Active Substance: GLUCOSAMINE
     Dosage: 1500 MILLIGRAM DAILY;
  14. CITICOLINE [Suspect]
     Active Substance: CITICOLINE
  15. OTILONIUM BROMIDE [Suspect]
     Active Substance: OTILONIUM BROMIDE
  16. ALFUZOSIN [Suspect]
     Active Substance: ALFUZOSIN
     Dosage: 100 MILLIGRAM DAILY;
  17. TRAZODONE [Suspect]
     Active Substance: TRAZODONE HYDROCHLORIDE
     Dosage: 150 MILLIGRAM DAILY;
  18. TRAZODONE [Suspect]
     Active Substance: TRAZODONE HYDROCHLORIDE
     Dosage: 20 MILLIGRAM DAILY;
  19. CLIDINIUM BROMIDE [Suspect]
     Active Substance: CLIDINIUM BROMIDE
  20. BETAHISTINE [Suspect]
     Active Substance: BETAHISTINE
  21. CELECOXIB. [Suspect]
     Active Substance: CELECOXIB

REACTIONS (5)
  - Apraxia [Recovered/Resolved]
  - Disturbance in attention [Recovered/Resolved]
  - Myoclonus [Recovered/Resolved]
  - Gait disturbance [Recovered/Resolved]
  - Disorientation [Unknown]
